FAERS Safety Report 11909795 (Version 3)
Quarter: 2016Q4

REPORT INFORMATION
  Report Type: Report from Study
  Country: US (occurrence: US)
  Receive Date: 20160112
  Receipt Date: 20161122
  Transmission Date: 20170206
  Serious: No
  Sender: FDA-Public Use
  Company Number: PHEH2016US000842

PATIENT
  Age: 42 Year
  Sex: Female

DRUGS (1)
  1. GILENYA [Suspect]
     Active Substance: FINGOLIMOD HYDROCHLORIDE
     Indication: RELAPSING-REMITTING MULTIPLE SCLEROSIS
     Dosage: QD
     Route: 048
     Dates: start: 20090101

REACTIONS (6)
  - Hypoaesthesia [Unknown]
  - Influenza [Unknown]
  - Malaise [Unknown]
  - Headache [Unknown]
  - Hyperthermia [Unknown]
  - Aphasia [Unknown]

NARRATIVE: CASE EVENT DATE: 20160107
